FAERS Safety Report 8152139-5 (Version None)
Quarter: 2012Q1

REPORT INFORMATION
  Report Type: 
  Country: None (occurrence: None)
  Receive Date: 20120215
  Receipt Date: 20120215
  Transmission Date: 20120608
  Serious: Yes (Hospitalization)
  Sender: FDA-Public Use
  Company Number: None

PATIENT
  Sex: Male
  Weight: 57.5 kg

DRUGS (3)
  1. BEVACIZUMAB (RHUMAB VEGF) [Suspect]
     Dosage: 890 MG
  2. PACLITAXEL [Suspect]
     Dosage: 328 MG
  3. CARBOPLATIN [Suspect]
     Dosage: 500 MG

REACTIONS (4)
  - DIVERTICULUM [None]
  - ABDOMINAL PAIN LOWER [None]
  - CONSTIPATION [None]
  - GASTROINTESTINAL DISORDER [None]
